FAERS Safety Report 12931135 (Version 1)
Quarter: 2016Q4

REPORT INFORMATION
  Report Type: Report from Study
  Country: US (occurrence: US)
  Receive Date: 20161110
  Receipt Date: 20161110
  Transmission Date: 20170207
  Serious: Yes (Hospitalization)
  Sender: FDA-Public Use
  Company Number: US-ANTARES PHARMA, INC.-2016-LIT-ME-0309

PATIENT
  Age: 51 Year
  Sex: Male

DRUGS (2)
  1. METHOTREXATE. [Suspect]
     Active Substance: METHOTREXATE
     Indication: VASCULITIS
  2. METHOTREXATE. [Suspect]
     Active Substance: METHOTREXATE
     Indication: OFF LABEL USE
     Route: 065

REACTIONS (9)
  - Asthenia [Unknown]
  - Vasculitis [Recovered/Resolved]
  - Pyrexia [Recovered/Resolved]
  - Seizure [Unknown]
  - Dysarthria [Recovered/Resolved]
  - Speech disorder [Recovered/Resolved]
  - Meningitis [Unknown]
  - Tachypnoea [Recovered/Resolved]
  - Mental status changes [Unknown]
